FAERS Safety Report 21851169 (Version 2)
Quarter: 2023Q1

REPORT INFORMATION
  Report Type: Spontaneous
  Country: ES (occurrence: ES)
  Receive Date: 20230112
  Receipt Date: 20230118
  Transmission Date: 20230417
  Serious: Yes (Life-Threatening, Hospitalization, Other)
  Sender: FDA-Public Use
  Company Number: ES-DENTSPLY-2023SCDP000001

PATIENT
  Age: 52 Year
  Sex: Male

DRUGS (1)
  1. LIDOCAINE [Suspect]
     Active Substance: LIDOCAINE
     Indication: Local anaesthesia
     Dosage: 0.5 MILLILITER TOTAL (CUMULATIVE DOSE) 2 MG/ML  LIDOCAINE

REACTIONS (2)
  - Kounis syndrome [Recovered/Resolved]
  - Cardiac arrest [Recovered/Resolved]
